FAERS Safety Report 20876232 (Version 1)
Quarter: 2022Q2

REPORT INFORMATION
  Report Type: Spontaneous
  Country: US (occurrence: None)
  Receive Date: 20220525
  Receipt Date: 20220525
  Transmission Date: 20220721
  Serious: Yes (Life-Threatening, Hospitalization)
  Sender: FDA-Public Use
  Company Number: None

PATIENT
  Age: 77 Year
  Sex: Female

DRUGS (1)
  1. VERZENIO [Suspect]
     Active Substance: ABEMACICLIB
     Dosage: 50MG BID ORAL
     Route: 048
     Dates: start: 202202

REACTIONS (2)
  - Bradycardia [None]
  - Atrial fibrillation [None]

NARRATIVE: CASE EVENT DATE: 20220501
